FAERS Safety Report 11779520 (Version 1)
Quarter: 2015Q4

REPORT INFORMATION
  Report Type: Spontaneous
  Country: US (occurrence: US)
  Receive Date: 20151125
  Receipt Date: 20151125
  Transmission Date: 20160304
  Serious: Yes (Hospitalization, Other)
  Sender: FDA-Public Use
  Company Number: US-APOTEX-2015AP014858

PATIENT
  Age: 62 Year
  Sex: Male

DRUGS (1)
  1. TERBINAFINE TABLETS USP [Suspect]
     Active Substance: TERBINAFINE
     Indication: ONYCHOMYCOSIS
     Route: 048

REACTIONS (1)
  - Systemic lupus erythematosus [Recovering/Resolving]
